FAERS Safety Report 20876043 (Version 1)
Quarter: 2022Q2

REPORT INFORMATION
  Report Type: Spontaneous
  Country: GB (occurrence: GB)
  Receive Date: 20220526
  Receipt Date: 20220526
  Transmission Date: 20220721
  Serious: Yes (Hospitalization, Other)
  Sender: FDA-Public Use
  Company Number: GB-AMRYT PHARMACEUTICALS DAC-AEGR005898

PATIENT

DRUGS (1)
  1. METRELEPTIN [Suspect]
     Active Substance: METRELEPTIN
     Indication: Lipodystrophy acquired
     Dosage: UNK 5.8 MILLIGRAM
     Route: 058
     Dates: start: 20190509

REACTIONS (1)
  - Nephrolithiasis [Not Recovered/Not Resolved]
